FAERS Safety Report 5847799-5 (Version None)
Quarter: 2008Q3

REPORT INFORMATION
  Report Type: 
  Country: None (occurrence: None)
  Receive Date: 20080815
  Receipt Date: 20080815
  Transmission Date: 20090109
  Serious: Yes (Hospitalization)
  Sender: FDA-Public Use
  Company Number: None

PATIENT
  Sex: Male

DRUGS (7)
  1. LEUKINE [Suspect]
     Indication: PROSTATE CANCER
     Dosage: 250 MG/M2 QD X 14 DAYS SQ
     Route: 058
     Dates: start: 20080811
  2. LUPRON [Concomitant]
  3. NEXIUM [Concomitant]
  4. MULTI-VITAMINS [Concomitant]
  5. ALLOPURINOL [Concomitant]
  6. CALCIUM SUPPLEMENTS [Concomitant]
  7. FLOMAX [Concomitant]

REACTIONS (1)
  - DEEP VEIN THROMBOSIS [None]
